FAERS Safety Report 23267579 (Version 2)
Quarter: 2023Q4

REPORT INFORMATION
  Report Type: Spontaneous
  Country: US (occurrence: US)
  Receive Date: 20231206
  Receipt Date: 20231222
  Transmission Date: 20240109
  Serious: Yes (Hospitalization, Other)
  Sender: FDA-Public Use
  Company Number: US-AIMMUNE THERAPEUTICS, INC.-2023AIMT01273

PATIENT

DRUGS (7)
  1. PALFORZIA [Suspect]
     Active Substance: PEANUT
     Indication: Food allergy
     Dosage: IDE (0.5MG-6MG) ONCE
     Route: 048
     Dates: start: 20231013, end: 20231013
  2. PALFORZIA [Suspect]
     Active Substance: PEANUT
     Dosage: 6 MG, 1X/DAY
     Route: 048
     Dates: start: 20231027, end: 20231124
  3. PALFORZIA [Suspect]
     Active Substance: PEANUT
     Dosage: 6 MG, ONCE, LAST DOSE PRIOR APPENDICITIS
     Route: 048
     Dates: start: 20231107, end: 20231107
  4. PALFORZIA [Suspect]
     Active Substance: PEANUT
     Dosage: 4 MG, ONCE, RESUMED
     Route: 048
     Dates: start: 20231127, end: 20231127
  5. PALFORZIA [Suspect]
     Active Substance: PEANUT
     Dosage: 10 MG, 1X/DAY
     Route: 048
     Dates: start: 20231128
  6. ALDACTONE [Concomitant]
     Active Substance: SPIRONOLACTONE
     Indication: Product used for unknown indication
     Dosage: 50 MG
  7. BACTRIM [Concomitant]
     Active Substance: SULFAMETHOXAZOLE\TRIMETHOPRIM
     Indication: Product used for unknown indication
     Dosage: 400-80 MG

REACTIONS (10)
  - Appendicitis [Recovered/Resolved]
  - Focal peritonitis [Recovered/Resolved]
  - Abdominal pain lower [Recovered/Resolved]
  - Flank pain [Recovered/Resolved]
  - Retching [Recovered/Resolved]
  - Appetite disorder [Recovered/Resolved]
  - Diarrhoea [Recovered/Resolved]
  - Nausea [Recovered/Resolved]
  - Vomiting [Recovered/Resolved]
  - Abdominal discomfort [Recovered/Resolved]

NARRATIVE: CASE EVENT DATE: 20231107
